FAERS Safety Report 12669075 (Version 1)
Quarter: 2016Q3

REPORT INFORMATION
  Report Type: Spontaneous
  Country: US (occurrence: US)
  Receive Date: 20160819
  Receipt Date: 20160819
  Transmission Date: 20161109
  Serious: No
  Sender: FDA-Public Use
  Company Number: ALCN2016US005724

PATIENT
  Age: 79 Year
  Sex: Female
  Weight: 56.69 kg

DRUGS (3)
  1. LEVOTHYROXINE. [Concomitant]
     Active Substance: LEVOTHYROXINE
     Indication: HYPOTHYROIDISM
     Dosage: UNK
     Route: 065
  2. PREDNISOLONE ACETATE. [Suspect]
     Active Substance: PREDNISOLONE ACETATE
     Indication: CORNEAL OEDEMA
     Dosage: 1 GTT, QHS
     Route: 047
     Dates: start: 20150304, end: 201506
  3. PREDNISOLONE ACETATE. [Suspect]
     Active Substance: PREDNISOLONE ACETATE
     Indication: CATARACT OPERATION
     Dosage: 1 GTT, QHS
     Route: 047
     Dates: start: 201507, end: 20160327

REACTIONS (6)
  - Eye irritation [Recovering/Resolving]
  - Depression [Recovered/Resolved]
  - Asthenia [Recovered/Resolved]
  - Thyroid disorder [Recovered/Resolved]
  - Vertigo [Recovered/Resolved]
  - Vision blurred [Recovering/Resolving]

NARRATIVE: CASE EVENT DATE: 201506
